FAERS Safety Report 8813737 (Version 2)
Quarter: 2012Q4

REPORT INFORMATION
  Report Type: Report from Study
  Country: CA (occurrence: CA)
  Receive Date: 20120928
  Receipt Date: 20121226
  Transmission Date: 20130627
  Serious: Yes (Hospitalization)
  Sender: FDA-Public Use
  Company Number: CA-ROCHE-1136266

PATIENT
  Age: 64 Year
  Sex: Female
  Weight: 95.3 kg

DRUGS (10)
  1. TOCILIZUMAB [Suspect]
     Indication: RHEUMATOID ARTHRITIS
     Route: 042
     Dates: start: 20110527
  2. TOCILIZUMAB [Suspect]
     Route: 042
     Dates: start: 20120116
  3. METHOTREXATE [Concomitant]
  4. TEMAZEPAM [Concomitant]
  5. PREDNISONE [Concomitant]
  6. DILAUDID [Concomitant]
  7. ALPRAZOLAM [Concomitant]
  8. LORAZEPAM [Concomitant]
  9. MIRAPEX [Concomitant]
  10. HYDRALAZINE [Concomitant]

REACTIONS (5)
  - Procedural complication [Recovering/Resolving]
  - Musculoskeletal discomfort [Recovered/Resolved]
  - Muscle rupture [Recovered/Resolved]
  - Bone disorder [Recovered/Resolved]
  - Arthralgia [Not Recovered/Not Resolved]
